FAERS Safety Report 9522293 (Version 1)
Quarter: 2013Q3

REPORT INFORMATION
  Report Type: Spontaneous
  Country: US (occurrence: None)
  Receive Date: 20130911
  Receipt Date: 20130911
  Transmission Date: 20140515
  Serious: No
  Sender: FDA-Public Use
  Company Number: AEUSA201300204

PATIENT
  Age: 41 Year
  Sex: Female
  Weight: 62.6 kg

DRUGS (7)
  1. GAMUNEX-C (10 PCT) [Suspect]
     Indication: AUTOIMMUNE DISORDER
     Route: 042
     Dates: start: 20130225, end: 20130614
  2. BENADRYL /01563701/ [Concomitant]
  3. PARACETAMOL [Concomitant]
  4. VITAMIN D3 [Concomitant]
  5. CALCIUM WITH VITAMIN D /01233101/ [Concomitant]
  6. CALCIUM CITRATE [Concomitant]
  7. MOTRIN [Concomitant]

REACTIONS (1)
  - Hypersensitivity [None]
